FAERS Safety Report 4999800-9 (Version None)
Quarter: 2006Q2

REPORT INFORMATION
  Report Type: 
  Country: None (occurrence: None)
  Receive Date: 20060509
  Receipt Date: 20060424
  Transmission Date: 20061013
  Serious: Yes (Other)
  Sender: FDA-Public Use
  Company Number: 224601

PATIENT

DRUGS (1)
  1. AVASTIN [Suspect]
     Dosage: INTRAVITREAL

REACTIONS (2)
  - VISUAL ACUITY REDUCED [None]
  - VITRITIS [None]
